FAERS Safety Report 4503339-4 (Version None)
Quarter: 2004Q4

REPORT INFORMATION
  Report Type: 
  Country: None (occurrence: None)
  Receive Date: 20041112
  Receipt Date: 20041028
  Transmission Date: 20050328
  Serious: Yes (Hospitalization)
  Sender: FDA-Public Use
  Company Number: GBR-2004-0001293

PATIENT
  Age: 45 Year
  Sex: Male

DRUGS (7)
  1. OXYCONTIN [Suspect]
     Indication: BACK PAIN
     Dosage: 20 MG, DAILY, ORAL
     Route: 048
     Dates: start: 20040920, end: 20040929
  2. OXYNORM CAPSULES 20MG (OXYCODONE HYDROCHLORIDE) IR CAPSULE [Suspect]
     Indication: PAIN
     Dosage: 20 MG, DAILY, ORAL
     Route: 048
     Dates: start: 20040920, end: 20040929
  3. DIFENE (DICLOFENAC SODIUM) [Concomitant]
  4. DIAZEPAM [Concomitant]
  5. NEURONTIN [Concomitant]
  6. VIOXX [Concomitant]
  7. SOLPADOL [Concomitant]

REACTIONS (13)
  - ABDOMINAL ABSCESS [None]
  - BACTERIA BLOOD IDENTIFIED [None]
  - CONFUSIONAL STATE [None]
  - DIVERTICULUM [None]
  - GASTRIC DISORDER [None]
  - HEPATIC STEATOSIS [None]
  - HEPATITIS [None]
  - HEPATOMEGALY [None]
  - PERICARDIAL EFFUSION [None]
  - PYREXIA [None]
  - SINUS TACHYCARDIA [None]
  - SOMNOLENCE [None]
  - SPLENOMEGALY [None]
